FAERS Safety Report 14156613 (Version 1)
Quarter: 2017Q4

REPORT INFORMATION
  Report Type: Report from Study
  Country: US (occurrence: US)
  Receive Date: 20171103
  Receipt Date: 20171103
  Transmission Date: 20180321
  Serious: Yes (Hospitalization, Other)
  Sender: FDA-Public Use
  Company Number: US-BAYER-2017-204320

PATIENT
  Age: 84 Year
  Sex: Male

DRUGS (1)
  1. NEXAVAR [Suspect]
     Active Substance: SORAFENIB
     Indication: HEPATOCELLULAR CARCINOMA
     Dosage: 400 MG, BID
     Route: 048
     Dates: start: 20170915, end: 201710

REACTIONS (5)
  - Jaundice [None]
  - Haematemesis [None]
  - Hepatic failure [None]
  - Blood urine present [None]
  - Hepatic encephalopathy [None]

NARRATIVE: CASE EVENT DATE: 2017
